FAERS Safety Report 9999327 (Version 1)
Quarter: 2014Q1

REPORT INFORMATION
  Report Type: Report from Study
  Country: DE (occurrence: DE)
  Receive Date: 20140312
  Receipt Date: 20140312
  Transmission Date: 20141002
  Serious: Yes (Other)
  Sender: FDA-Public Use
  Company Number: DE-MYLANLABS-2014S1004816

PATIENT
  Sex: Female

DRUGS (3)
  1. MYCOPHENOLATE MOFETIL [Suspect]
     Indication: LUPUS NEPHRITIS
     Dosage: TAPERED BY 500 MG/DAY EVERY 4W TO 500 MG/DAY
     Route: 065
  2. MYCOPHENOLATE MOFETIL [Suspect]
     Indication: OFF LABEL USE
     Dosage: TAPERED BY 500 MG/DAY EVERY 4W TO 500 MG/DAY
     Route: 065
  3. AZATHIOPRINE [Suspect]
     Indication: LUPUS NEPHRITIS
     Dosage: 2 MG/KG
     Route: 065

REACTIONS (1)
  - Renal impairment [Recovered/Resolved]
